FAERS Safety Report 20468203 (Version 1)
Quarter: 2022Q1

REPORT INFORMATION
  Report Type: Spontaneous
  Country: US (occurrence: None)
  Receive Date: 20220213
  Receipt Date: 20220213
  Transmission Date: 20220424
  Serious: Yes (Hospitalization)
  Sender: FDA-Public Use
  Company Number: None

PATIENT
  Age: 85 Year
  Sex: Male
  Weight: 55.35 kg

DRUGS (1)
  1. SOTROVIMAB [Suspect]
     Active Substance: SOTROVIMAB
     Indication: COVID-19
     Dates: start: 20220206, end: 20220206

REACTIONS (4)
  - Oropharyngeal pain [None]
  - Dysphagia [None]
  - Hypoxia [None]
  - Hyponatraemia [None]

NARRATIVE: CASE EVENT DATE: 20220206
